FAERS Safety Report 10417937 (Version 1)
Quarter: 2014Q2

REPORT INFORMATION
  Report Type: Spontaneous
  Country: US (occurrence: None)
  Receive Date: 20140609
  Receipt Date: 20140609
  Transmission Date: 20141212
  Serious: No
  Sender: FDA-Public Use
  Company Number: 2014TUS000983

PATIENT
  Sex: Male

DRUGS (2)
  1. BRINTELLIX (VORTIOXETINE) TABLET, 10MG [Suspect]
     Indication: DEPRESSION
     Route: 048
     Dates: start: 20140206
  2. CYMBALTA (DULOXETINE HYDROCHLORIDE) [Concomitant]

REACTIONS (1)
  - Stupor [None]
